FAERS Safety Report 7312055-5 (Version None)
Quarter: 2011Q1

REPORT INFORMATION
  Report Type: 
  Country: None (occurrence: None)
  Receive Date: 20110224
  Receipt Date: 20100609
  Transmission Date: 20110831
  Serious: Yes (Other)
  Sender: FDA-Public Use
  Company Number: US-BRISTOL-MYERS SQUIBB COMPANY-15141633

PATIENT
  Age: 4 Decade
  Sex: Female

DRUGS (4)
  1. TEMODAR [Suspect]
     Indication: BREAST CANCER METASTATIC
  2. RADIATION THERAPY [Suspect]
     Indication: BREAST CANCER METASTATIC
  3. TAXOL [Suspect]
     Indication: BREAST CANCER METASTATIC
  4. AVASTIN [Suspect]
     Indication: BREAST CANCER METASTATIC

REACTIONS (1)
  - NEOPLASM MALIGNANT [None]
